FAERS Safety Report 10645532 (Version 1)
Quarter: 2014Q4

REPORT INFORMATION
  Report Type: Spontaneous
  Country: US (occurrence: None)
  Receive Date: 20141210
  Receipt Date: 20141210
  Transmission Date: 20150529
  Serious: Yes (Other)
  Sender: FDA-Public Use
  Company Number: None

PATIENT
  Age: 58 Year
  Sex: Female
  Weight: 81.65 kg

DRUGS (2)
  1. FENOFIBRIC ACID. [Suspect]
     Active Substance: FENOFIBRIC ACID
     Indication: BLOOD TRIGLYCERIDES ABNORMAL
     Route: 048
     Dates: start: 20120622, end: 20141118
  2. FENOFIBRIC ACID. [Suspect]
     Active Substance: FENOFIBRIC ACID
     Indication: BLOOD CHOLESTEROL ABNORMAL
     Route: 048
     Dates: start: 20120622, end: 20141118

REACTIONS (7)
  - Blood creatine phosphokinase increased [None]
  - Chest pain [None]
  - Impaired driving ability [None]
  - Muscle spasms [None]
  - Drug dose omission [None]
  - Myalgia [None]
  - Activities of daily living impaired [None]

NARRATIVE: CASE EVENT DATE: 20141118
